FAERS Safety Report 4969442-X (Version None)
Quarter: 2006Q2

REPORT INFORMATION
  Report Type: 
  Country: None (occurrence: None)
  Receive Date: 20060405
  Receipt Date: 20060327
  Transmission Date: 20061013
  Serious: Yes (Other)
  Sender: FDA-Public Use
  Company Number: 2006042926

PATIENT
  Age: 81 Year
  Sex: Female
  Weight: 70.3075 kg

DRUGS (5)
  1. NORVASC [Suspect]
     Indication: HEART RATE
     Dosage: 5 MG (5 MG, QD INTERVAL: EVERY DAY)
  2. SYNTHROID [Concomitant]
  3. DIOVAN HCT [Concomitant]
  4. LESCOL XL [Concomitant]
  5. WARFARIN SODIUM [Concomitant]

REACTIONS (1)
  - CATARACT [None]
